FAERS Safety Report 13295494 (Version 3)
Quarter: 2017Q1

REPORT INFORMATION
  Report Type: Spontaneous
  Country: US (occurrence: US)
  Receive Date: 20170303
  Receipt Date: 20170309
  Transmission Date: 20170428
  Serious: Yes (Hospitalization, Other)
  Sender: FDA-Public Use
  Company Number: US-TAKEDA-2017MPI001726

PATIENT
  Sex: Male
  Weight: 77.98 kg

DRUGS (1)
  1. NINLARO [Suspect]
     Active Substance: IXAZOMIB
     Indication: PLASMA CELL MYELOMA
     Dosage: 4 MG, UNK
     Route: 048
     Dates: start: 20161127, end: 201702

REACTIONS (4)
  - Renal failure [Unknown]
  - Blood calcium increased [Unknown]
  - Plasma cell myeloma [Unknown]
  - Bacterial diarrhoea [Unknown]
